FAERS Safety Report 10972960 (Version 2)
Quarter: 2015Q2

REPORT INFORMATION
  Report Type: Spontaneous
  Country: US (occurrence: US)
  Receive Date: 20150331
  Receipt Date: 20150525
  Transmission Date: 20150821
  Serious: No
  Sender: FDA-Public Use
  Company Number: US-JNJFOC-20140410411

PATIENT
  Sex: Male

DRUGS (4)
  1. RISPERDAL [Suspect]
     Active Substance: RISPERIDONE
     Indication: ASPERGER^S DISORDER
     Route: 048
  2. RISPERDAL [Suspect]
     Active Substance: RISPERIDONE
     Indication: AUTISM SPECTRUM DISORDER
     Route: 048
  3. RISPERDAL [Suspect]
     Active Substance: RISPERIDONE
     Indication: AUTISM SPECTRUM DISORDER
     Route: 048
     Dates: start: 2000, end: 2005
  4. RISPERDAL [Suspect]
     Active Substance: RISPERIDONE
     Indication: ASPERGER^S DISORDER
     Route: 048
     Dates: start: 2000, end: 2005

REACTIONS (11)
  - Product use issue [Unknown]
  - Insomnia [Unknown]
  - Tic [Unknown]
  - Emotional distress [Unknown]
  - Gynaecomastia [Unknown]
  - Hypersomnia [Unknown]
  - Abdominal pain upper [Unknown]
  - Irritability [Unknown]
  - Somnolence [Unknown]
  - Muscle spasms [Unknown]
  - Weight increased [Unknown]
